FAERS Safety Report 23512550 (Version 1)
Quarter: 2024Q1

REPORT INFORMATION
  Report Type: Spontaneous
  Country: US (occurrence: None)
  Receive Date: 20240209
  Receipt Date: 20240209
  Transmission Date: 20240410
  Serious: Yes (Hospitalization)
  Sender: FDA-Public Use
  Company Number: None

PATIENT
  Age: 73 Year
  Sex: Female
  Weight: 67.95 kg

DRUGS (11)
  1. BREXUCABTAGENE AUTOLEUCEL [Suspect]
     Active Substance: BREXUCABTAGENE AUTOLEUCEL
     Indication: B-cell type acute leukaemia
     Dosage: OTHER FREQUENCY : ONCE;?
     Route: 041
     Dates: start: 20230929, end: 20230929
  2. Carvedilol 12.5 mg BID [Concomitant]
     Dates: start: 20230819
  3. Sennosides-docusate sodium 8.9-50 mg PRN [Concomitant]
     Dates: start: 20230819
  4. doxycycline monohydrate 100 mg BID [Concomitant]
     Dates: start: 20230819
  5. Magnesium Oxide 400 (240 Mg)mg BID [Concomitant]
     Dates: start: 20230811
  6. Sulfamethoxazole-trimethoprim 800-160 mg 3Xweek [Concomitant]
     Dates: start: 20230802
  7. acetaminophen 325mg 2 tabs Q4 PRN [Concomitant]
     Dates: start: 20230802
  8. FOLIC ACID [Concomitant]
     Active Substance: FOLIC ACID
  9. fluconazole 200mg daily [Concomitant]
     Dates: start: 20230726
  10. pantoprazole 40mg daily [Concomitant]
     Dates: start: 20221115
  11. valacyclovir 500mg BID [Concomitant]
     Dates: start: 20221114

REACTIONS (15)
  - Vascular device infection [None]
  - Immune effector cell-associated neurotoxicity syndrome [None]
  - Heart rate irregular [None]
  - Hypotension [None]
  - Supraventricular tachycardia [None]
  - Cytokine release syndrome [None]
  - Magnetic resonance imaging head abnormal [None]
  - Fatigue [None]
  - Dyspnoea [None]
  - Hypertension [None]
  - Fatigue [None]
  - Encephalopathy [None]
  - Blood glucose increased [None]
  - Blood bilirubin increased [None]
  - Hypoxia [None]

NARRATIVE: CASE EVENT DATE: 20231007
